FAERS Safety Report 13901875 (Version 1)
Quarter: 2017Q3

REPORT INFORMATION
  Report Type: Spontaneous
  Country: RU (occurrence: RU)
  Receive Date: 20170824
  Receipt Date: 20170824
  Transmission Date: 20171127
  Serious: Yes (Death)
  Sender: FDA-Public Use
  Company Number: RU-009507513-1708RUS007869

PATIENT
  Age: 59 Year
  Sex: Female

DRUGS (1)
  1. BRIDAN (SUGAMMADEX SODIUM) [Suspect]
     Active Substance: SUGAMMADEX SODIUM
     Indication: NEUROMUSCULAR BLOCKADE REVERSAL
     Dosage: 200 MG, ONE TIME DOSE
     Route: 042
     Dates: start: 20170814, end: 20170814

REACTIONS (1)
  - Dyspnoea [Fatal]

NARRATIVE: CASE EVENT DATE: 20170814
